FAERS Safety Report 9341191 (Version 1)
Quarter: 2013Q2

REPORT INFORMATION
  Report Type: Spontaneous
  Country: US (occurrence: US)
  Receive Date: 20130611
  Receipt Date: 20130611
  Transmission Date: 20140414
  Serious: Yes (Hospitalization)
  Sender: FDA-Public Use
  Company Number: US-B.I. PHARMACEUTICALS,INC./RIDGEFIELD-2013-BI-16335BP

PATIENT
  Age: 57 Year
  Sex: Female

DRUGS (13)
  1. COMBIVENT [Suspect]
     Indication: ASTHMA
     Dosage: STRENGTH: 18 MCG / 103 MCG; DAILY DOSE: 72MCG/ 412MCG
     Route: 055
  2. BENICAR [Concomitant]
     Indication: HYPERTENSION
     Route: 048
  3. VITAMIN E [Concomitant]
     Route: 048
  4. NITROGLYCERIN SL [Concomitant]
  5. SINGULAIR [Concomitant]
     Route: 048
  6. PROVENTIL [Concomitant]
     Route: 055
  7. PERCOCET [Concomitant]
     Indication: BACK PAIN
     Route: 048
  8. CALCIUM WITH D [Concomitant]
     Route: 048
  9. PREVACID [Concomitant]
     Indication: GASTROOESOPHAGEAL REFLUX DISEASE
     Route: 048
  10. VITAMIN B6 [Concomitant]
     Route: 048
  11. PULMICORT [Concomitant]
     Route: 055
  12. VITAMIN D [Concomitant]
     Route: 048
  13. ASPIRIN [Concomitant]
     Dosage: 81 MG
     Route: 048

REACTIONS (3)
  - Myocardial infarction [Recovered/Resolved]
  - Wheezing [Recovered/Resolved]
  - Blood triglycerides increased [Recovered/Resolved]
